FAERS Safety Report 19142001 (Version 4)
Quarter: 2023Q2

REPORT INFORMATION
  Report Type: Spontaneous
  Country: US (occurrence: US)
  Receive Date: 20210415
  Receipt Date: 20230604
  Transmission Date: 20230721
  Serious: Yes (Hospitalization)
  Sender: FDA-Public Use
  Company Number: US-TEVA-2021-US-1900083

PATIENT
  Age: 11 Month
  Sex: Female

DRUGS (5)
  1. VORICONAZOLE [Interacting]
     Active Substance: VORICONAZOLE
     Indication: Pulmonary mass
     Route: 065
     Dates: start: 2020
  2. VORICONAZOLE [Interacting]
     Active Substance: VORICONAZOLE
     Indication: Pyrexia
  3. TACROLIMUS [Interacting]
     Active Substance: TACROLIMUS
     Indication: Prophylaxis against graft versus host disease
     Dosage: 2.4 MILLIGRAM DAILY;
     Route: 065
     Dates: start: 2020
  4. TACROLIMUS [Interacting]
     Active Substance: TACROLIMUS
     Dosage: 2.8 MILLIGRAM DAILY;
     Route: 065
     Dates: start: 2020
  5. TACROLIMUS [Interacting]
     Active Substance: TACROLIMUS
     Dosage: 4 MILLIGRAM DAILY;
     Route: 065
     Dates: start: 202004, end: 202004

REACTIONS (4)
  - Drug interaction [Unknown]
  - Septic shock [Recovering/Resolving]
  - Chemotherapeutic drug level above therapeutic [Recovered/Resolved]
  - Toxicity to various agents [Recovered/Resolved]

NARRATIVE: CASE EVENT DATE: 20200401
